FAERS Safety Report 16881810 (Version 1)
Quarter: 2019Q4

REPORT INFORMATION
  Report Type: Report from Study
  Country: US (occurrence: US)
  Receive Date: 20191003
  Receipt Date: 20191003
  Transmission Date: 20200122
  Serious: Yes (Hospitalization, Other)
  Sender: FDA-Public Use
  Company Number: US-GILEAD-2019-0423925

PATIENT
  Age: 58 Year
  Sex: Female

DRUGS (23)
  1. AZTREONAM LYSINE [Suspect]
     Active Substance: AZTREONAM LYSINE
     Indication: CYSTIC FIBROSIS
     Dosage: 1 DOSAGE FORM (1 ML VIAL), TID; 28 DAYS ON/28 DAYS OFF
     Route: 055
     Dates: start: 20131014
  2. CREON [Concomitant]
     Active Substance: PANCRELIPASE AMYLASE\PANCRELIPASE LIPASE\PANCRELIPASE PROTEASE
  3. HEPARIN [Concomitant]
     Active Substance: HEPARIN SODIUM
  4. NOVOLIN L [Concomitant]
     Active Substance: INSULIN HUMAN
  5. PARI [Concomitant]
  6. VITAMIN D3 [Concomitant]
     Active Substance: CHOLECALCIFEROL
  7. ADVAIR HFA [Concomitant]
     Active Substance: FLUTICASONE PROPIONATE\SALMETEROL XINAFOATE
  8. HYPERSAL [Concomitant]
     Active Substance: SODIUM CHLORIDE
  9. SYMDEKO [Concomitant]
     Active Substance: IVACAFTOR\TEZACAFTOR
  10. CHOICEFUL VITAMINS [Concomitant]
  11. IBUPROFEN. [Concomitant]
     Active Substance: IBUPROFEN
  12. INSULIN [Concomitant]
     Active Substance: INSULIN NOS
  13. PULMOZYME [Concomitant]
     Active Substance: DORNASE ALFA
  14. RANITIDINE. [Concomitant]
     Active Substance: RANITIDINE
  15. NOVOLIN [Concomitant]
     Active Substance: INSULIN HUMAN
  16. PROAIR HFA [Concomitant]
     Active Substance: ALBUTEROL SULFATE
  17. DENAVIR [Concomitant]
     Active Substance: PENCICLOVIR
  18. PANTOPRAZOLE [Concomitant]
     Active Substance: PANTOPRAZOLE
  19. SINGULAIR [Concomitant]
     Active Substance: MONTELUKAST SODIUM
  20. VITAMIN GEL WATER [Concomitant]
  21. ALBUTEROL [SALBUTAMOL] [Concomitant]
     Active Substance: ALBUTEROL
  22. HUMALOG [Concomitant]
     Active Substance: INSULIN LISPRO
  23. SODIUM CHLORIDE. [Concomitant]
     Active Substance: SODIUM CHLORIDE

REACTIONS (4)
  - Product dose omission [Not Recovered/Not Resolved]
  - Pneumonia [Not Recovered/Not Resolved]
  - Decreased appetite [Not Recovered/Not Resolved]
  - Fatigue [Not Recovered/Not Resolved]

NARRATIVE: CASE EVENT DATE: 201909
